FAERS Safety Report 18051121 (Version 4)
Quarter: 2021Q2

REPORT INFORMATION
  Report Type: Spontaneous
  Country: DE (occurrence: DE)
  Receive Date: 20200721
  Receipt Date: 20210611
  Transmission Date: 20210717
  Serious: Yes (Other)
  Sender: FDA-Public Use
  Company Number: DE-MYLANLABS-2020M1064614

PATIENT
  Sex: Female

DRUGS (20)
  1. VALSACOR [Concomitant]
     Active Substance: VALSARTAN
     Indication: PRODUCT USED FOR UNKNOWN INDICATION
     Dosage: 320 MG, QD (1?0?0)
     Dates: start: 20180720, end: 201906
  2. METFOGAMMA [Concomitant]
     Active Substance: METFORMIN HYDROCHLORIDE
     Indication: PRODUCT USED FOR UNKNOWN INDICATION
     Dosage: 1000 MG, BID (1?0?1)
  3. VALSARTAN. [Suspect]
     Active Substance: VALSARTAN
     Indication: PRODUCT USED FOR UNKNOWN INDICATION
     Dosage: 160 MG, QD (1?0?0)
     Dates: start: 20150908
  4. VALSARTAN. [Suspect]
     Active Substance: VALSARTAN
     Indication: PRODUCT USED FOR UNKNOWN INDICATION
     Dosage: 160 MG (160 MG?320 MG), QD
     Route: 065
     Dates: start: 201509, end: 201807
  5. METFORMINE HCL [Concomitant]
     Active Substance: METFORMIN HYDROCHLORIDE
     Indication: PRODUCT USED FOR UNKNOWN INDICATION
     Dosage: 1000 MILLIGRAM
     Route: 065
     Dates: start: 201801
  6. METFOGAMMA [Concomitant]
     Active Substance: METFORMIN HYDROCHLORIDE
     Dosage: 1000 MG, BID (1/2?0?1)
  7. VIGANTOL                           /00318501/ [Concomitant]
     Active Substance: CHOLECALCIFEROL
     Indication: PRODUCT USED FOR UNKNOWN INDICATION
     Dosage: 1000 INTERNATIONAL UNIT
     Route: 065
     Dates: start: 201807
  8. VIGANTOLETTEN [Concomitant]
     Active Substance: CHOLECALCIFEROL
     Indication: PRODUCT USED FOR UNKNOWN INDICATION
     Dosage: UNK, QD (1?0?0) (1000 IE)
  9. HYLO GEL [Concomitant]
     Indication: PRODUCT USED FOR UNKNOWN INDICATION
     Dosage: UNK, IN CASE OF INFECTIONS
     Route: 065
     Dates: start: 201802
  10. INFLUVAC [Concomitant]
     Active Substance: INFLUENZA VIRUS VACCINE TRIVALENT TYPE A+B
     Dosage: 1 DF, UNKNOWN
     Dates: start: 2018
  11. MATRICARIA RECUTITA [Concomitant]
     Active Substance: MATRICARIA RECUTITA
     Indication: PRODUCT USED FOR UNKNOWN INDICATION
     Dosage: UNK
  12. VALSARTAN. [Suspect]
     Active Substance: VALSARTAN
     Dosage: 320 MG, QD (1?0?0)
     Dates: start: 20170321, end: 201807
  13. CIRCADIN [Concomitant]
     Active Substance: MELATONIN
     Indication: PRODUCT USED FOR UNKNOWN INDICATION
     Dosage: 2 MG (30 UNITS WERE DISPENSED INSTEAD OF 21)
  14. INFLUVAC [Concomitant]
     Active Substance: INFLUENZA VIRUS VACCINE TRIVALENT TYPE A+B
     Indication: PRODUCT USED FOR UNKNOWN INDICATION
     Dosage: 1 DF, UNKNOWN
     Dates: start: 2019
  15. HYALURONATE SODIUM [Concomitant]
     Active Substance: HYALURONATE SODIUM
     Indication: PRODUCT USED FOR UNKNOWN INDICATION
     Dosage: UNK
     Route: 065
     Dates: start: 201609
  16. ASS RATIOPHARM [Concomitant]
     Active Substance: ASPIRIN
     Indication: PRODUCT USED FOR UNKNOWN INDICATION
     Dosage: 100 MILLIGRAM
     Route: 065
     Dates: start: 201704
  17. ATORVASTATIN [Concomitant]
     Active Substance: ATORVASTATIN
     Indication: PRODUCT USED FOR UNKNOWN INDICATION
     Dosage: 1 DF, QD (1?0?0)
  18. ACC AKUT [Concomitant]
     Active Substance: ACETYLCYSTEINE
     Indication: PRODUCTIVE COUGH
     Dosage: 600 MILLIGRAM
  19. ASPIRIN                            /00002701/ [Concomitant]
     Active Substance: ASPIRIN
     Indication: PRODUCT USED FOR UNKNOWN INDICATION
     Dosage: UNK
  20. CHAMOMILE                          /00512601/ [Concomitant]
     Indication: PRODUCT USED FOR UNKNOWN INDICATION
     Dosage: UNK (MOUTH AND THROAT SPRAY)

REACTIONS (10)
  - Respiratory tract infection [Unknown]
  - Diabetes mellitus [Unknown]
  - Post-traumatic stress disorder [Not Recovered/Not Resolved]
  - Fear of disease [Not Recovered/Not Resolved]
  - Poor quality product administered [Unknown]
  - Cardiovascular disorder [Unknown]
  - Breast calcifications [Not Recovered/Not Resolved]
  - Emotional distress [Not Recovered/Not Resolved]
  - Aortic stenosis [Unknown]
  - Product contamination [Unknown]

NARRATIVE: CASE EVENT DATE: 2016
